FAERS Safety Report 7371442-X (Version None)
Quarter: 2011Q1

REPORT INFORMATION
  Report Type: 
  Country: None (occurrence: None)
  Receive Date: 20110324
  Receipt Date: 20110316
  Transmission Date: 20110831
  Serious: Yes (Other)
  Sender: FDA-Public Use
  Company Number: US-JNJFOC-20110307105

PATIENT
  Sex: Male

DRUGS (1)
  1. LEVAQUIN [Suspect]
     Indication: SINUSITIS
     Route: 048

REACTIONS (5)
  - SKIN ULCER [None]
  - ARTHROPATHY [None]
  - MUSCLE TIGHTNESS [None]
  - JOINT INJURY [None]
  - ARTHRALGIA [None]
